FAERS Safety Report 16984557 (Version 1)
Quarter: 2019Q4

REPORT INFORMATION
  Report Type: Spontaneous
  Country: US (occurrence: US)
  Receive Date: 20191101
  Receipt Date: 20191101
  Transmission Date: 20200122
  Serious: No
  Sender: FDA-Public Use
  Company Number: US-PFIZER INC-2019470302

PATIENT
  Age: 78 Year
  Sex: Female
  Weight: 103.4 kg

DRUGS (1)
  1. IBRANCE [Suspect]
     Active Substance: PALBOCICLIB
     Indication: BREAST CANCER METASTATIC
     Dosage: 125 MG, CYCLIC, (DAILY X 21 DAYS, EVERY 28 DAYS)
     Route: 048
     Dates: start: 20171221

REACTIONS (2)
  - Nausea [Unknown]
  - Increased tendency to bruise [Unknown]
